FAERS Safety Report 5805636 (Version 3)
Quarter: 2012Q4

REPORT INFORMATION
  Report Type: 
  Country: US (occurrence: US)
  Receive Date: 20050527
  Receipt Date: 20121025
  Transmission Date: 20130627
  Serious: Yes (Other)
  Sender: FDA-Public Use
  Company Number: US-BRISTOL-MYERS SQUIBB COMPANY-12859443

PATIENT
  Age: 40 Year
  Sex: Female
  Weight: 83 kg

DRUGS (9)
  1. ABILIFY [Suspect]
     Indication: BIPOLAR DISORDER
     Dosage: 20mg a day
     Route: 048
     Dates: start: 200205, end: 201104
  2. ABILIFY [Suspect]
     Indication: BIPOLAR I DISORDER
     Dosage: 20mg a day
     Route: 048
     Dates: start: 200205, end: 201104
  3. DEPO-PROVERA [Concomitant]
  4. TYLENOL [Concomitant]
  5. DITROPAN [Concomitant]
     Indication: URINARY INCONTINENCE
  6. ZANAFLEX [Concomitant]
     Indication: MUSCLE SPASMS
  7. KLONOPIN [Concomitant]
     Dosage: as needed
  8. FISH OIL [Concomitant]
  9. CALCIUM [Concomitant]

REACTIONS (25)
  - Diabetes mellitus [Unknown]
  - Atrial fibrillation [Unknown]
  - Patella fracture [Unknown]
  - Bladder spasm [Unknown]
  - Urinary incontinence [Unknown]
  - Pollakiuria [Unknown]
  - Restless legs syndrome [Unknown]
  - Constipation [Unknown]
  - Hypertension [Unknown]
  - Blood prolactin increased [Unknown]
  - Somnolence [Unknown]
  - Pregnancy [Unknown]
  - Hypotension [Unknown]
  - Blood cholesterol increased [Unknown]
  - Weight increased [Unknown]
  - Hypoglycaemia [Unknown]
  - Nerve compression [Unknown]
  - Musculoskeletal pain [Unknown]
  - Musculoskeletal stiffness [Unknown]
  - Dry mouth [Unknown]
  - Vertigo [Unknown]
  - Contusion [Unknown]
  - Joint injury [Unknown]
  - Dysmenorrhoea [Unknown]
  - Menorrhagia [Unknown]
